FAERS Safety Report 19196757 (Version 1)
Quarter: 2021Q2

REPORT INFORMATION
  Report Type: Other
  Country: US (occurrence: US)
  Receive Date: 20210429
  Receipt Date: 20210429
  Transmission Date: 20210717
  Serious: Yes (Death, Other)
  Sender: FDA-Public Use
  Company Number: US-ROCHE-2814540

PATIENT

DRUGS (3)
  1. VALGANCICLOVIR. [Suspect]
     Active Substance: VALGANCICLOVIR
     Indication: RENAL TRANSPLANT
  2. VALGANCICLOVIR. [Suspect]
     Active Substance: VALGANCICLOVIR
     Indication: PROPHYLAXIS
     Route: 065
  3. BASILIXIMAB [Concomitant]
     Active Substance: BASILIXIMAB

REACTIONS (5)
  - Neutropenia [Unknown]
  - Polyomavirus viraemia [Unknown]
  - Graft loss [Unknown]
  - Death [Fatal]
  - Cytomegalovirus viraemia [Unknown]
